FAERS Safety Report 9445504 (Version 1)
Quarter: 2013Q3

REPORT INFORMATION
  Report Type: Spontaneous
  Country: JP (occurrence: None)
  Receive Date: 20130805
  Receipt Date: 20130805
  Transmission Date: 20140515
  Serious: Yes (Death, Hospitalization)
  Sender: FDA-Public Use
  Company Number: NSR_01206_2013

PATIENT
  Age: 7 Year
  Sex: Female
  Weight: 15.2 kg

DRUGS (3)
  1. LAMOTRIGINE [Suspect]
     Indication: EPILEPSY
     Dosage: 25 MG PER DAY,  DOSE INCREASED ABIDING TO THE PRESCRIBED DOSAGE AND ADMINISTRATION
  2. VALPROATE SODIUM [Suspect]
     Indication: EPILEPSY
     Dosage: DF
  3. CLONAZEPAM [Concomitant]

REACTIONS (12)
  - Drug reaction with eosinophilia and systemic symptoms [None]
  - Hepatic function abnormal [None]
  - Ventricular tachycardia [None]
  - Cardiomegaly [None]
  - Pericardial effusion [None]
  - Myocarditis [None]
  - Hypothyroidism [None]
  - Cardiogenic shock [None]
  - Cardiac failure chronic [None]
  - Herpes zoster [None]
  - Roseolovirus test positive [None]
  - Cytomegalovirus test positive [None]
